FAERS Safety Report 9179503 (Version 1)
Quarter: 2012Q4

REPORT INFORMATION
  Report Type: 
  Country: JP (occurrence: JP)
  Receive Date: 20121029
  Receipt Date: 20121029
  Transmission Date: 20130627
  Serious: Yes (Other)
  Sender: FDA-Public Use
  Company Number: JP-009507513-1210JPN011452

PATIENT
  Age: 65 Year
  Sex: Male

DRUGS (5)
  1. PEGINTRON [Suspect]
     Indication: HEPATITIS C
     Dosage: 80 Micro milliliter
     Route: 058
  2. REBETOL [Suspect]
     Indication: HEPATITIS C
     Dosage: 600 mg, qd
     Route: 048
  3. REBETOL [Suspect]
     Dosage: 400 mg, qd
     Route: 048
  4. TELAVIC [Suspect]
     Indication: HEPATITIS C
     Dosage: 2250 mg, qd
     Route: 048
  5. TELAVIC [Suspect]
     Dosage: 1500 mg, qd
     Route: 048

REACTIONS (1)
  - Pancreatitis acute [Recovering/Resolving]
